FAERS Safety Report 7883789-9 (Version None)
Quarter: 2011Q4

REPORT INFORMATION
  Report Type: 
  Country: None (occurrence: None)
  Receive Date: 20111102
  Receipt Date: 20111027
  Transmission Date: 20120403
  Serious: Yes (Hospitalization)
  Sender: FDA-Public Use
  Company Number: US-JNJFOC-20111007927

PATIENT
  Sex: Female

DRUGS (2)
  1. ZYRTEC [Suspect]
     Indication: PRODUCT USED FOR UNKNOWN INDICATION
     Dosage: FOR FIVE YEARS
     Route: 065
     Dates: start: 20060101
  2. ZYRTEC [Suspect]
     Route: 065

REACTIONS (4)
  - DRUG EFFECT DECREASED [None]
  - AUTOIMMUNE DISORDER [None]
  - URTICARIA [None]
  - WITHDRAWAL SYNDROME [None]
